APPROVED DRUG PRODUCT: VANRAFIA
Active Ingredient: ATRASENTAN HYDROCHLORIDE
Strength: EQ 0.75MG BASE
Dosage Form/Route: TABLET;ORAL
Application: N219208 | Product #001
Applicant: NOVARTIS PHARMACEUTICALS CORP
Approved: Apr 2, 2025 | RLD: Yes | RS: Yes | Type: RX

PATENTS:
Patent 12521369 | Expires: Feb 23, 2041
Patent 8623819 | Expires: Aug 22, 2028
Patent 12370174 | Expires: Dec 16, 2040
Patent 12121509 | Expires: Dec 16, 2040
Patent 11998526 | Expires: Dec 16, 2040
Patent 11874283 | Expires: Feb 18, 2032
Patent 11491137 | Expires: Dec 16, 2040
Patent 9364458 | Expires: Jul 7, 2034
Patent 10016393 | Expires: Jul 7, 2034

EXCLUSIVITY:
Code: NCE | Date: Apr 2, 2030